FAERS Safety Report 8568352-9 (Version None)
Quarter: 2012Q3

REPORT INFORMATION
  Report Type: 
  Country: None (occurrence: None)
  Receive Date: 20120803
  Receipt Date: 20120716
  Transmission Date: 20120928
  Serious: No
  Sender: FDA-Public Use
  Company Number: US-ABBOTT-12P-163-0957619-00

PATIENT
  Sex: Female
  Weight: 88.076 kg

DRUGS (5)
  1. PLAVIX [Concomitant]
     Indication: PRODUCT USED FOR UNKNOWN INDICATION
  2. COREG [Concomitant]
     Indication: PRODUCT USED FOR UNKNOWN INDICATION
  3. NIASPAN [Suspect]
     Indication: HIGH DENSITY LIPOPROTEIN DECREASED
     Dates: start: 20070101, end: 20080101
  4. NIASPAN [Suspect]
     Dates: start: 20080101, end: 20090101
  5. NIASPAN [Suspect]
     Dates: start: 20120101

REACTIONS (7)
  - OEDEMA PERIPHERAL [None]
  - ERYTHEMA [None]
  - CONSTIPATION [None]
  - DIARRHOEA [None]
  - HYPERHIDROSIS [None]
  - MYALGIA [None]
  - PAIN IN EXTREMITY [None]
